FAERS Safety Report 4744755-5 (Version None)
Quarter: 2005Q3

REPORT INFORMATION
  Report Type: 
  Country: None (occurrence: None)
  Receive Date: 20050815
  Receipt Date: 20050805
  Transmission Date: 20060218
  Serious: Yes (Other)
  Sender: FDA-Public Use
  Company Number: 2005-07-2212

PATIENT
  Sex: Female

DRUGS (4)
  1. ASPIRIN [Suspect]
     Route: 065
  2. HEPARIN [Suspect]
     Indication: DRUG USE FOR UNKNOWN INDICATION
     Route: 042
  3. PLAVIX [Suspect]
     Route: 065
  4. INTEGRILIN [Concomitant]
     Indication: CARDIAC OPERATION
     Route: 042
     Dates: start: 20050701

REACTIONS (3)
  - HAEMORRHAGE [None]
  - PLATELET COUNT DECREASED [None]
  - THROMBOCYTOPENIA [None]
